FAERS Safety Report 19419119 (Version 1)
Quarter: 2021Q2

REPORT INFORMATION
  Report Type: Report from Study
  Country: GB (occurrence: GB)
  Receive Date: 20210615
  Receipt Date: 20210615
  Transmission Date: 20210717
  Serious: Yes (Other)
  Sender: FDA-Public Use
  Company Number: NVSC2021GB131123

PATIENT
  Sex: Female

DRUGS (1)
  1. OMNITROPE [Suspect]
     Active Substance: SOMATROPIN
     Indication: GROWTH HORMONE DEFICIENCY
     Dosage: 0.2 MG, QD (ONCE EACH DAY)
     Route: 058
     Dates: start: 20210316

REACTIONS (5)
  - Pituitary tumour [Unknown]
  - Erythema [Unknown]
  - Peripheral swelling [Unknown]
  - Arthralgia [Unknown]
  - Eczema [Unknown]
